FAERS Safety Report 6968769-X (Version None)
Quarter: 2010Q3

REPORT INFORMATION
  Report Type: 
  Country: None (occurrence: None)
  Receive Date: 20100901
  Receipt Date: 20100817
  Transmission Date: 20110219
  Serious: Yes (Other)
  Sender: FDA-Public Use
  Company Number: 2010-2294

PATIENT
  Age: 62 Year
  Sex: Female

DRUGS (7)
  1. APOKYN [Suspect]
     Indication: PARKINSON'S DISEASE
     Dosage: 3 MG, AS REQUIRED/REDUCED
  2. REQUIP [Suspect]
     Indication: PARKINSON'S DISEASE
     Dates: start: 20040101
  3. REQUIP XL [Suspect]
     Indication: PARKINSON'S DISEASE
     Dosage: 16 MG (4 MG, ORAL), 20 MG (4 MG), ORAL/INCREASED
     Route: 048
     Dates: start: 20080101
  4. SINEMET [Suspect]
     Indication: PARKINSON'S DISEASE
     Dosage: SEE IMAGE, INCREASED
     Route: 048
     Dates: start: 20020101
  5. SINEMET [Suspect]
     Indication: PARKINSON'S DISEASE
     Dosage: SEE IMAGE, INCREASED
     Route: 048
     Dates: start: 20020101
  6. COMTAN [Suspect]
     Indication: PARKINSON'S DISEASE
     Dosage: 800 MG (200 MG, 4 IN 1 D), 1000 MG (200 MG, 5 IN 1 D) INCREASED
     Dates: start: 20070101
  7. COMTAN [Suspect]
     Indication: PARKINSON'S DISEASE
     Dosage: 800 MG (200 MG, 4 IN 1 D), 1000 MG (200 MG, 5 IN 1 D) INCREASED
     Dates: start: 20070101

REACTIONS (7)
  - ABASIA [None]
  - DRUG EFFECT DECREASED [None]
  - MOBILITY DECREASED [None]
  - MUSCLE SPASMS [None]
  - MUSCULOSKELETAL STIFFNESS [None]
  - PAIN [None]
  - SUDDEN ONSET OF SLEEP [None]
